FAERS Safety Report 9858248 (Version 1)
Quarter: 2014Q1

REPORT INFORMATION
  Report Type: Spontaneous
  Country: US (occurrence: None)
  Receive Date: 20140129
  Receipt Date: 20140129
  Transmission Date: 20141002
  Serious: Yes (Hospitalization)
  Sender: FDA-Public Use
  Company Number: None

PATIENT
  Age: 92 Year
  Sex: Male
  Weight: 46 kg

DRUGS (1)
  1. CILASTATIN/IMIPENEM [Suspect]
     Indication: OSTEOMYELITIS
     Route: 042
     Dates: start: 20140114, end: 20140117

REACTIONS (1)
  - Convulsion [None]
